FAERS Safety Report 11522481 (Version 1)
Quarter: 2015Q3

REPORT INFORMATION
  Report Type: Spontaneous
  Country: US (occurrence: US)
  Receive Date: 20150903
  Receipt Date: 20150903
  Transmission Date: 20151125
  Serious: No
  Sender: FDA-Public Use
  Company Number: US-ELI_LILLY_AND_COMPANY-US201211008734

PATIENT
  Age: 21 Year
  Sex: Female

DRUGS (1)
  1. CYMBALTA [Suspect]
     Active Substance: DULOXETINE HYDROCHLORIDE
     Indication: FIBROMYALGIA
     Dosage: 20 MG, QD
     Route: 048
     Dates: start: 20121118, end: 20121119

REACTIONS (6)
  - Mania [Unknown]
  - Nausea [Unknown]
  - Blood pressure increased [Unknown]
  - Migraine [Unknown]
  - Fear [Unknown]
  - Heart rate increased [Unknown]

NARRATIVE: CASE EVENT DATE: 20121118
